FAERS Safety Report 4756629-4 (Version None)
Quarter: 2005Q3

REPORT INFORMATION
  Report Type: 
  Country: None (occurrence: None)
  Receive Date: 20050830
  Receipt Date: 20050414
  Transmission Date: 20060218
  Serious: Yes (Hospitalization, Other)
  Sender: FDA-Public Use
  Company Number: US-MERCK-0504USA02812

PATIENT
  Age: 80 Year
  Sex: Female
  Weight: 74 kg

DRUGS (20)
  1. VIOXX [Suspect]
     Indication: SPONDYLITIS
     Route: 048
     Dates: start: 20020514, end: 20040401
  2. VIOXX [Suspect]
     Indication: MONARTHRITIS
     Route: 048
     Dates: start: 20020514, end: 20040401
  3. ISOSORBIDE [Concomitant]
     Route: 065
  4. ASPIRIN [Concomitant]
     Indication: CARDIAC DISORDER
     Route: 065
  5. ATENOLOL [Concomitant]
     Indication: HYPERTENSION
     Route: 065
     Dates: start: 20020114
  6. NITROQUICK [Concomitant]
     Route: 065
  7. LEVOXYL [Concomitant]
     Indication: THYROID DISORDER
     Route: 065
  8. ULTRAM [Concomitant]
     Route: 065
  9. MORPHINE SULFATE [Concomitant]
     Route: 065
  10. ACETAMINOPHEN [Concomitant]
     Indication: PAIN
     Route: 065
  11. FERROUS SULFATE [Concomitant]
     Indication: ANAEMIA
     Route: 065
  12. LIPITOR [Concomitant]
     Indication: BLOOD CHOLESTEROL INCREASED
     Route: 065
     Dates: start: 20020607
  13. PROZAC [Concomitant]
     Indication: DEPRESSION
     Route: 065
  14. AMITRIPTYLINE HYDROCHLORIDE [Concomitant]
     Indication: SLEEP DISORDER THERAPY
     Route: 065
  15. COLACE [Concomitant]
     Indication: CONSTIPATION
     Route: 065
  16. SORBITOL [Concomitant]
     Route: 065
  17. ACIPHEX [Concomitant]
     Route: 065
  18. METOCLOPRAMIDE [Concomitant]
     Indication: NAUSEA
     Route: 065
  19. PROTONIX [Concomitant]
     Indication: DYSPEPSIA
     Route: 065
  20. DETROL [Concomitant]
     Indication: HYPERTONIC BLADDER
     Route: 065

REACTIONS (3)
  - BLOOD CHOLESTEROL INCREASED [None]
  - CARDIOVASCULAR DISORDER [None]
  - MYOCARDIAL INFARCTION [None]
